FAERS Safety Report 21463397 (Version 1)
Quarter: 2022Q4

REPORT INFORMATION
  Report Type: Other
  Country: None (occurrence: CN)
  Receive Date: 20221017
  Receipt Date: 20221017
  Transmission Date: 20230113
  Serious: Yes (Hospitalization)
  Sender: FDA-Public Use
  Company Number: CN-Shanghai Hengrui Pharmaceutical Co., Ltd.-2133894

PATIENT
  Age: 62 Year
  Sex: Female
  Weight: 52 kg

DRUGS (4)
  1. SEVOFLURANE [Suspect]
     Active Substance: SEVOFLURANE
     Indication: Induction of anaesthesia
     Route: 055
     Dates: start: 20210802, end: 20210802
  2. UNSPECIFIED INGREDIENT [Suspect]
     Active Substance: UNSPECIFIED INGREDIENT
     Dates: start: 20210802, end: 20210802
  3. FENTANYL CITRATE [Suspect]
     Active Substance: FENTANYL CITRATE
     Dates: start: 20210802, end: 20210802
  4. VECURONIUM BROMIDE [Suspect]
     Active Substance: VECURONIUM BROMIDE
     Dates: start: 20210802, end: 20210802

REACTIONS (1)
  - Acute coronary syndrome [Recovering/Resolving]

NARRATIVE: CASE EVENT DATE: 20210802
